FAERS Safety Report 19081233 (Version 1)
Quarter: 2021Q1

REPORT INFORMATION
  Report Type: Spontaneous
  Country: AU (occurrence: AU)
  Receive Date: 20210331
  Receipt Date: 20210331
  Transmission Date: 20210420
  Serious: Yes (Hospitalization, Other)
  Sender: FDA-Public Use
  Company Number: AU-ANIPHARMA-2021-AU-000081

PATIENT
  Age: 38 Year
  Sex: Female

DRUGS (2)
  1. VALPROIC ACID (NON?SPECIFIC) [Suspect]
     Active Substance: VALPROIC ACID
     Indication: BIPOLAR DISORDER
  2. QUETIAPINE. [Concomitant]
     Active Substance: QUETIAPINE

REACTIONS (2)
  - Myopathy [Recovered/Resolved]
  - Lipid metabolism disorder [Recovered/Resolved]
